FAERS Safety Report 6254471-9 (Version None)
Quarter: 2009Q2

REPORT INFORMATION
  Report Type: 
  Country: None (occurrence: None)
  Receive Date: 20090630
  Receipt Date: 20081216
  Transmission Date: 20091009
  Serious: Yes (Hospitalization)
  Sender: FDA-Public Use
  Company Number: US-SEPTODONT-200800245

PATIENT
  Sex: Male
  Weight: 91 kg

DRUGS (1)
  1. ARTICAINE HYDROCHLORIDE WITH EPINEPHRINE 1:100000 [Suspect]
     Indication: LOCAL ANAESTHESIA
     Dosage: DENTAL
     Route: 004
     Dates: start: 20050101

REACTIONS (4)
  - HYPOAESTHESIA [None]
  - NERVE INJURY [None]
  - PAIN [None]
  - TINNITUS [None]
